FAERS Safety Report 8006166-9 (Version None)
Quarter: 2011Q4

REPORT INFORMATION
  Report Type: 
  Country: None (occurrence: None)
  Receive Date: 20111226
  Receipt Date: 20111220
  Transmission Date: 20120403
  Serious: Yes (Life-Threatening)
  Sender: FDA-Public Use
  Company Number: JP-BRISTOL-MYERS SQUIBB COMPANY-15527310

PATIENT
  Age: 61 Year
  Sex: Female

DRUGS (8)
  1. PREDNISOLONE [Concomitant]
     Indication: RHEUMATOID ARTHRITIS
     Dosage: 02NOV10-27JAN11 13APR2011-ONG
     Route: 048
     Dates: start: 20101102
  2. LOXONIN [Concomitant]
     Indication: RHEUMATOID ARTHRITIS
  3. SOLU-MEDROL [Concomitant]
  4. ISONIAZID [Concomitant]
     Indication: ANTIBIOTIC PROPHYLAXIS
  5. VOLTAREN [Concomitant]
     Indication: RHEUMATOID ARTHRITIS
  6. MUCOSTA [Concomitant]
  7. PROTECADIN [Concomitant]
  8. ORENCIA [Suspect]
     Indication: RHEUMATOID ARTHRITIS
     Route: 041
     Dates: start: 20101105

REACTIONS (2)
  - HEPATIC ENCEPHALOPATHY [None]
  - ACUTE HEPATIC FAILURE [None]
